FAERS Safety Report 7159058-1 (Version None)
Quarter: 2010Q4

REPORT INFORMATION
  Report Type: 
  Country: None (occurrence: None)
  Receive Date: 20101214
  Receipt Date: 20101203
  Transmission Date: 20110411
  Serious: Yes (Hospitalization)
  Sender: FDA-Public Use
  Company Number: US-ELI_LILLY_AND_COMPANY-US201010000455

PATIENT
  Sex: Male
  Weight: 237.64 kg

DRUGS (16)
  1. BYETTA [Suspect]
     Indication: TYPE 2 DIABETES MELLITUS
     Dosage: 5 UG, 2/D
     Route: 058
  2. BYETTA [Suspect]
     Dosage: 10 UG, 2/D
     Route: 058
     Dates: start: 20080731
  3. BYETTA [Suspect]
     Dosage: 10 UG, 2/D
     Route: 058
     Dates: start: 20100930, end: 20101027
  4. HUMALOG [Concomitant]
     Indication: TYPE 2 DIABETES MELLITUS
     Dosage: UNK, UNK
     Route: 058
     Dates: start: 20100510
  5. METFORMIN [Concomitant]
     Indication: TYPE 2 DIABETES MELLITUS
     Dosage: 1000 MG, 2/D
     Route: 048
     Dates: start: 20080819
  6. LEVEMIR [Concomitant]
     Indication: DIABETES MELLITUS
     Dosage: 42 U, 2/D
     Route: 058
     Dates: start: 20090324
  7. LASIX [Concomitant]
     Indication: OEDEMA
     Dosage: 40 MG, DAILY (1/D)
     Route: 048
     Dates: start: 20070430
  8. ZAROXOLYN [Concomitant]
     Indication: OEDEMA
     Dosage: 1.25 MG, DAILY (1/D)
     Route: 048
     Dates: start: 20091113, end: 20101027
  9. CRESTOR [Concomitant]
     Indication: LIPIDS
     Dosage: 10 MG, EACH EVENING
     Route: 048
     Dates: start: 20100331, end: 20100707
  10. ASPIRIN [Concomitant]
     Indication: DIABETES MELLITUS
     Dosage: 81 MG, DAILY (1/D)
     Route: 048
     Dates: start: 20050310
  11. VITAMIN B-12 [Concomitant]
     Indication: ANAEMIA
     Dosage: 1000 UG, MONTHLY (1/M)
     Route: 058
     Dates: start: 20070129
  12. NIASPAN [Concomitant]
     Indication: LIPIDS
     Dosage: 500 MG, EACH EVENING
     Route: 048
     Dates: start: 20091023, end: 20101027
  13. ALDACTONE [Concomitant]
     Indication: OEDEMA
     Dosage: 50 MG, DAILY (1/D)
     Route: 048
     Dates: start: 20091106
  14. VITAMIN D [Concomitant]
     Indication: VITAMIN D DEFICIENCY
     Dosage: 50000 U, WEEKLY (1/W)
     Route: 048
     Dates: start: 20100222
  15. KLOR-CON [Concomitant]
     Indication: PRODUCT USED FOR UNKNOWN INDICATION
     Dosage: 20 MEQ, DAILY (1/D)
     Route: 048
     Dates: start: 20101211
  16. KLOR-CON [Concomitant]
     Dosage: 20 MEQ, 2/D

REACTIONS (7)
  - BLOOD GLUCOSE INCREASED [None]
  - CELLULITIS [None]
  - DECREASED APPETITE [None]
  - DIZZINESS [None]
  - NAUSEA [None]
  - OFF LABEL USE [None]
  - PANNICULITIS [None]
